FAERS Safety Report 6584851-3 (Version None)
Quarter: 2010Q1

REPORT INFORMATION
  Report Type: 
  Country: None (occurrence: None)
  Receive Date: 20100204
  Receipt Date: 20100120
  Transmission Date: 20100710
  Serious: Yes (Other)
  Sender: FDA-Public Use
  Company Number: 10-000121

PATIENT
  Age: 48 Year
  Sex: Female
  Weight: 59 kg

DRUGS (3)
  1. LOESTRIN 24 FE [Suspect]
     Indication: HORMONE SUPPRESSION THERAPY
     Dosage: 20/1000 UG TABLET DAILY, ORAL
     Route: 048
     Dates: start: 20091203
  2. VICODIN [Suspect]
     Indication: ANALGESIC THERAPY
     Dosage: UNK, ORAL
     Route: 048
     Dates: start: 20100107, end: 20100109
  3. IBUPROFEN [Concomitant]

REACTIONS (6)
  - ADNEXA UTERI PAIN [None]
  - AMENORRHOEA [None]
  - BREAST PAIN [None]
  - DIZZINESS [None]
  - INAPPROPRIATE SCHEDULE OF DRUG ADMINISTRATION [None]
  - VERTIGO [None]
